FAERS Safety Report 19493189 (Version 1)
Quarter: 2021Q3

REPORT INFORMATION
  Report Type: Spontaneous
  Country: FR (occurrence: FR)
  Receive Date: 20210705
  Receipt Date: 20210705
  Transmission Date: 20211014
  Serious: Yes (Other)
  Sender: FDA-Public Use
  Company Number: FR-ORGANON-O2107FRA000007

PATIENT
  Age: 4 Year
  Sex: Male
  Weight: 16 kg

DRUGS (1)
  1. CELESTENE (BETAMETHASONE) [Suspect]
     Active Substance: BETAMETHASONE
     Indication: COUGH
     Dosage: 2 MG/KG/ DAY (1?0?1) FOR 48H INSTEAD OF 160 DROPS/DAY ( ONCE A DAY), ORAL SOLUTION IN DROPS
     Route: 048
     Dates: start: 20210612, end: 20210613

REACTIONS (2)
  - Sinus bradycardia [Not Recovered/Not Resolved]
  - Duplicate therapy error [Recovered/Resolved]

NARRATIVE: CASE EVENT DATE: 20210612
